FAERS Safety Report 7728616-5 (Version None)
Quarter: 2011Q3

REPORT INFORMATION
  Report Type: 
  Country: None (occurrence: None)
  Receive Date: 20110831
  Receipt Date: 20110831
  Transmission Date: 20111222
  Serious: Yes (Other)
  Sender: FDA-Public Use
  Company Number: None

PATIENT
  Age: 48 Year
  Sex: Female
  Weight: 66.8 kg

DRUGS (2)
  1. GENTAMYCIN SULFATE [Suspect]
     Indication: URINARY TRACT INFECTION
     Dosage: 2.4CC ONCE IV
     Route: 042
     Dates: start: 20110826
  2. GENTAMYCIN SULFATE [Suspect]
     Indication: DISEASE RECURRENCE
     Dosage: 2.4CC ONCE IV
     Route: 042
     Dates: start: 20110826

REACTIONS (3)
  - THROAT TIGHTNESS [None]
  - SWOLLEN TONGUE [None]
  - DIZZINESS [None]
